APPROVED DRUG PRODUCT: TIROSINT-SOL
Active Ingredient: LEVOTHYROXINE SODIUM
Strength: 112MCG/ML
Dosage Form/Route: SOLUTION;ORAL
Application: N206977 | Product #007
Applicant: IBSA INSTITUT BIOCHIMIQUE SA
Approved: Dec 15, 2016 | RLD: Yes | RS: No | Type: RX

PATENTS:
Patent 11241382 | Expires: Sep 17, 2039
Patent 11241382 | Expires: Sep 17, 2039
Patent 11096913 | Expires: Feb 28, 2037
Patent 10537538 | Expires: Feb 28, 2037